FAERS Safety Report 13053547 (Version 1)
Quarter: 2016Q4

REPORT INFORMATION
  Report Type: Spontaneous
  Country: FR (occurrence: FR)
  Receive Date: 20161222
  Receipt Date: 20161222
  Transmission Date: 20170207
  Serious: Yes (Hospitalization)
  Sender: FDA-Public Use
  Company Number: FR-009507513-1612FRA009200

PATIENT
  Age: 77 Year
  Sex: Female

DRUGS (1)
  1. KEYTRUDA [Suspect]
     Active Substance: PEMBROLIZUMAB
     Indication: MALIGNANT MELANOMA
     Dosage: 150 MG, UNK
     Route: 042
     Dates: start: 20151124, end: 2016

REACTIONS (7)
  - Vomiting [Recovered/Resolved]
  - Pancreatitis [Recovered/Resolved]
  - Hepatitis [Recovered/Resolved]
  - Diarrhoea [Recovered/Resolved]
  - Cholestasis [Recovered/Resolved]
  - Arthralgia [Recovered/Resolved]
  - Pyrexia [Recovered/Resolved]

NARRATIVE: CASE EVENT DATE: 20160628
